FAERS Safety Report 8889130 (Version 1)
Quarter: 2012Q4

REPORT INFORMATION
  Report Type: 
  Country: GB (occurrence: GB)
  Receive Date: 20121106
  Receipt Date: 20121106
  Transmission Date: 20130627
  Serious: Yes (Life-Threatening, Disabling, Other)
  Sender: FDA-Public Use
  Company Number: GB-PFIZER INC-2012272638

PATIENT
  Age: 21 Year
  Sex: Female
  Weight: 60 kg

DRUGS (5)
  1. ONDANSETRON HCL [Suspect]
     Indication: NAUSEA
     Dosage: Stat dose
     Route: 042
     Dates: start: 20120921, end: 20120921
  2. PARACETAMOL [Concomitant]
     Indication: PAIN IN HIP
     Dosage: 1 g, 4x/day
     Route: 048
     Dates: start: 20120920
  3. TEMAZEPAM [Concomitant]
     Indication: INSOMNIA
     Dosage: 10 mg, 1x/day
     Route: 048
     Dates: start: 20120920, end: 20120920
  4. DIHYDROCODEINE [Concomitant]
     Indication: PAIN IN HIP
     Dosage: 60 mg, 4x/day
     Route: 048
     Dates: start: 20120920, end: 20120921
  5. IBUPROFEN [Concomitant]
     Indication: PAIN IN HIP
     Dosage: 400 mg, UNK
     Route: 048
     Dates: start: 20120920, end: 20120921

REACTIONS (5)
  - Apnoea [Recovered/Resolved]
  - Oculogyric crisis [Recovered/Resolved]
  - Posturing [Recovered/Resolved]
  - Nuchal rigidity [Recovered/Resolved]
  - Monoplegia [Recovered/Resolved]
